FAERS Safety Report 10042587 (Version 2)
Quarter: 2014Q1

REPORT INFORMATION
  Report Type: Spontaneous
  Country: US (occurrence: None)
  Receive Date: 20140325
  Receipt Date: 20140327
  Transmission Date: 20141002
  Serious: Yes (Hospitalization, Other)
  Sender: FDA-Public Use
  Company Number: ADR-2014-00458

PATIENT
  Sex: Female

DRUGS (1)
  1. GABLOFEN [Suspect]
     Indication: CEREBRAL PALSY

REACTIONS (5)
  - Implant site erythema [None]
  - Implant site vesicles [None]
  - Wound drainage [None]
  - Incision site infection [None]
  - Implant site infection [None]
